FAERS Safety Report 17345425 (Version 1)
Quarter: 2020Q1

REPORT INFORMATION
  Report Type: Spontaneous
  Country: ES (occurrence: ES)
  Receive Date: 20200129
  Receipt Date: 20200129
  Transmission Date: 20200409
  Serious: Yes (Other)
  Sender: FDA-Public Use
  Company Number: ES-JNJFOC-20200132897

PATIENT

DRUGS (1)
  1. TREMFYA [Suspect]
     Active Substance: GUSELKUMAB
     Indication: PRODUCT USED FOR UNKNOWN INDICATION
     Route: 065

REACTIONS (9)
  - Injection site pain [Unknown]
  - Lower respiratory tract infection [Unknown]
  - Arthralgia [Unknown]
  - Viral pericarditis [Unknown]
  - Eczema [Unknown]
  - Anxiety [Unknown]
  - Infection [Unknown]
  - Urinary tract infection [Unknown]
  - Paraesthesia [Unknown]
